FAERS Safety Report 7674476-0 (Version None)
Quarter: 2011Q3

REPORT INFORMATION
  Report Type: 
  Country: None (occurrence: None)
  Receive Date: 20110810
  Receipt Date: 20110809
  Transmission Date: 20111222
  Serious: Yes (Death, Hospitalization)
  Sender: FDA-Public Use
  Company Number: FR-ROCHE-771082

PATIENT
  Sex: Female
  Weight: 66 kg

DRUGS (9)
  1. CAPECITABINE [Suspect]
     Dosage: CYCLE 1: 2800 MG
     Route: 048
     Dates: start: 20110323, end: 20110325
  2. ATENOLOL [Concomitant]
     Dates: start: 20050101
  3. FUROSEMIDE [Concomitant]
     Dates: start: 20050101
  4. VINFLUNINE [Suspect]
     Dosage: CYCLE 1: 475 MG
     Route: 042
     Dates: start: 20110323, end: 20110323
  5. METFORMIN HCL [Concomitant]
     Dates: start: 20040101
  6. LESCOL [Concomitant]
     Dates: start: 20080101
  7. HYZAAR [Concomitant]
     Dates: start: 20050101
  8. LEXOMIL [Concomitant]
     Dates: start: 19960101
  9. DIOSMINE [Concomitant]
     Dates: start: 20100301

REACTIONS (4)
  - SEPTIC SHOCK [None]
  - MYALGIA [None]
  - STOMATITIS [None]
  - MUCOSAL INFLAMMATION [None]
